FAERS Safety Report 15241868 (Version 3)
Quarter: 2018Q3

REPORT INFORMATION
  Report Type: Spontaneous
  Country: US (occurrence: US)
  Receive Date: 20180805
  Receipt Date: 20180910
  Transmission Date: 20181010
  Serious: No
  Sender: FDA-Public Use
  Company Number: US-JNJFOC-20180725926

PATIENT
  Age: 44 Year
  Sex: Male

DRUGS (1)
  1. INVEGA SUSTENNA [Suspect]
     Active Substance: PALIPERIDONE PALMITATE
     Indication: SCHIZOAFFECTIVE DISORDER
     Dosage: 1.5 ML
     Route: 030
     Dates: start: 20170509

REACTIONS (3)
  - Product leakage [Unknown]
  - Drug administration error [Unknown]
  - Syringe issue [Unknown]

NARRATIVE: CASE EVENT DATE: 20180703
